FAERS Safety Report 12888554 (Version 1)
Quarter: 2016Q4

REPORT INFORMATION
  Report Type: Spontaneous
  Country: US (occurrence: US)
  Receive Date: 20161027
  Receipt Date: 20161027
  Transmission Date: 20170207
  Serious: Yes (Other)
  Sender: FDA-Public Use
  Company Number: US-PFIZER INC-2016496010

PATIENT
  Age: 69 Year
  Sex: Male
  Weight: 176 kg

DRUGS (9)
  1. VIAGRA [Suspect]
     Active Substance: SILDENAFIL CITRATE
     Indication: ERECTILE DYSFUNCTION
     Dosage: UNK TOOK TWO TABLETS, ^ONE AND HALF AT BEDTIME
  2. ALBUTEROL. [Concomitant]
     Active Substance: ALBUTEROL
  3. LASIX [Concomitant]
     Active Substance: FUROSEMIDE
  4. METOPROLOL. [Concomitant]
     Active Substance: METOPROLOL
  5. LIPITOR [Concomitant]
     Active Substance: ATORVASTATIN CALCIUM
  6. ASPIRIN. [Concomitant]
     Active Substance: ASPIRIN
  7. ATORVASTATIN [Concomitant]
     Active Substance: ATORVASTATIN
  8. NITROGLYCERIN. [Concomitant]
     Active Substance: NITROGLYCERIN
  9. MAREVAN [Concomitant]
     Active Substance: WARFARIN SODIUM

REACTIONS (3)
  - Penile pain [Unknown]
  - Contraindicated product administered [Unknown]
  - Erection increased [Not Recovered/Not Resolved]

NARRATIVE: CASE EVENT DATE: 20161017
